FAERS Safety Report 20911991 (Version 2)
Quarter: 2022Q2

REPORT INFORMATION
  Report Type: Report from Study
  Country: US (occurrence: US)
  Receive Date: 20220603
  Receipt Date: 20220616
  Transmission Date: 20220720
  Serious: Yes (Hospitalization, Other)
  Sender: FDA-Public Use
  Company Number: US-ORG100014127-2022000605

PATIENT
  Sex: Female

DRUGS (4)
  1. LYSODREN [Suspect]
     Active Substance: MITOTANE
     Indication: Adrenocortical carcinoma
     Dosage: 02 TABLETS TWICE DAILY
     Route: 048
     Dates: start: 20210420
  2. HYDROCORTISONE [Concomitant]
     Active Substance: HYDROCORTISONE
     Indication: Adrenal insufficiency
  3. CDB4 Freeze CRE VANISH [Concomitant]
     Indication: Product used for unknown indication
  4. THC FREE LIQ 20MG/ML [Concomitant]
     Indication: Product used for unknown indication

REACTIONS (2)
  - Osteomyelitis [Recovering/Resolving]
  - Adrenal insufficiency [Recovering/Resolving]

NARRATIVE: CASE EVENT DATE: 20210101
